FAERS Safety Report 13344283 (Version 1)
Quarter: 2017Q1

REPORT INFORMATION
  Report Type: Spontaneous
  Country: US (occurrence: US)
  Receive Date: 20170317
  Receipt Date: 20170317
  Transmission Date: 20170428
  Serious: Yes (Hospitalization)
  Sender: FDA-Public Use
  Company Number: US-BEH-2017078878

PATIENT
  Age: 37 Year
  Sex: Female
  Weight: 117.91 kg

DRUGS (1)
  1. HIZENTRA [Suspect]
     Active Substance: HUMAN IMMUNOGLOBULIN G
     Indication: IMMUNODEFICIENCY COMMON VARIABLE
     Dosage: 0.2 G/ML
     Route: 058
     Dates: start: 20170113

REACTIONS (1)
  - Laryngitis fungal [Unknown]

NARRATIVE: CASE EVENT DATE: 201702
